FAERS Safety Report 9358988 (Version 1)
Quarter: 2013Q2

REPORT INFORMATION
  Report Type: Spontaneous
  Country: JP (occurrence: None)
  Receive Date: 20130617
  Receipt Date: 20130617
  Transmission Date: 20140414
  Serious: Yes (Other)
  Sender: FDA-Public Use
  Company Number: FK201302057

PATIENT
  Age: 66 Year
  Sex: Female

DRUGS (5)
  1. CISPLATIN [Suspect]
     Indication: GASTRIC CANCER
  2. GIMERACIL [Suspect]
  3. OTERACIL [Suspect]
  4. TEGAFUR [Suspect]
  5. DEXAMETHAZONE (DEXAMETHASONE) [Concomitant]

REACTIONS (1)
  - Aortic thrombosis [None]
